FAERS Safety Report 9978337 (Version 1)
Quarter: 2014Q1

REPORT INFORMATION
  Report Type: Report from Study
  Country: US (occurrence: US)
  Receive Date: 20140306
  Receipt Date: 20140306
  Transmission Date: 20141002
  Serious: No
  Sender: FDA-Public Use
  Company Number: US-ABBVIE-13P-163-1173297-00

PATIENT
  Sex: Female

DRUGS (8)
  1. HUMIRA [Suspect]
     Indication: RHEUMATOID ARTHRITIS
  2. HUMIRA [Suspect]
     Indication: PSORIASIS
  3. TRAMADOL [Concomitant]
     Indication: PAIN
  4. PREDNISONE [Concomitant]
     Indication: INFLAMMATION
  5. CARDIZEM [Concomitant]
     Indication: HYPERTENSION
  6. CARDIZEM [Concomitant]
     Indication: CARDIAC DISORDER
  7. METFORMIN [Concomitant]
     Indication: DIABETES MELLITUS
  8. MELOXICAM [Concomitant]
     Indication: RHEUMATOID ARTHRITIS

REACTIONS (3)
  - Arthropathy [Not Recovered/Not Resolved]
  - Drug ineffective [Not Recovered/Not Resolved]
  - Psoriasis [Not Recovered/Not Resolved]
